FAERS Safety Report 5491204-8 (Version None)
Quarter: 2007Q4

REPORT INFORMATION
  Report Type: 
  Country: None (occurrence: None)
  Receive Date: 20071019
  Receipt Date: 20071009
  Transmission Date: 20080405
  Serious: Yes (Other)
  Sender: FDA-Public Use
  Company Number: FR-ABBOTT-07P-056-0420788-00

PATIENT
  Age: 29 Year
  Sex: Female

DRUGS (4)
  1. NORVIR [Suspect]
     Indication: SYSTEMIC ANTIVIRAL TREATMENT
     Route: 048
     Dates: start: 20060322
  2. LAMIVUDINE + ZIDOVUDINE [Suspect]
     Indication: SYSTEMIC ANTIVIRAL TREATMENT
     Route: 048
     Dates: start: 20060322
  3. FOSAMPRENAVIR CALCIUM [Suspect]
     Indication: SYSTEMIC ANTIVIRAL TREATMENT
     Route: 048
     Dates: start: 20060322
  4. ZIDOVUDINE [Suspect]
     Indication: SYSTEMIC ANTIVIRAL TREATMENT
     Route: 042
     Dates: start: 20070429, end: 20070429

REACTIONS (5)
  - DRUG EXPOSURE DURING PREGNANCY [None]
  - IRON DEFICIENCY [None]
  - PELVIC PAIN [None]
  - PYREXIA [None]
  - TOXOPLASMA SEROLOGY POSITIVE [None]
